FAERS Safety Report 6810105-3 (Version None)
Quarter: 2010Q2

REPORT INFORMATION
  Report Type: 
  Country: None (occurrence: None)
  Receive Date: 20100630
  Receipt Date: 20100625
  Transmission Date: 20101027
  Serious: Yes (Death)
  Sender: FDA-Public Use
  Company Number: FR-ROCHE-711813

PATIENT
  Sex: Male
  Weight: 59 kg

DRUGS (2)
  1. BEVACIZUMAB [Suspect]
     Dosage: FREQUENCY: EVERY OTHER WEEK + CCI EVERY WEEK.
     Route: 042
     Dates: start: 20091218, end: 20100305
  2. TEMSIROLIMUS [Suspect]
     Dosage: FORM AND FREQUENCY NOT PROVIDED.
     Route: 042
     Dates: start: 20091218, end: 20100305

REACTIONS (1)
  - SUDDEN DEATH [None]
